FAERS Safety Report 10196672 (Version 1)
Quarter: 2014Q2

REPORT INFORMATION
  Report Type: Spontaneous
  Country: CH (occurrence: CH)
  Receive Date: 20140527
  Receipt Date: 20140527
  Transmission Date: 20141212
  Serious: Yes (Hospitalization)
  Sender: FDA-Public Use
  Company Number: CH-PFIZER INC-2014138639

PATIENT
  Age: 75 Year
  Sex: Male

DRUGS (10)
  1. SORTIS [Suspect]
     Dosage: 40 MG, 1X/DAY
     Route: 048
  2. EMSELEX [Interacting]
     Dosage: 7.5 MG, 1X/DAY
     Dates: start: 201404, end: 20140418
  3. BILASTINE [Concomitant]
     Dosage: UNK
  4. DALACIN [Concomitant]
     Dosage: UNK
  5. IBEROGAST [Concomitant]
     Dosage: UNK
  6. SYMFONA N [Concomitant]
     Dosage: UNK
  7. TEMESTA [Concomitant]
     Dosage: UNK
  8. ASPIRIN CARDIO [Concomitant]
     Dosage: UNK
  9. CONCOR [Concomitant]
     Dosage: UNK
  10. NEXIUM [Concomitant]
     Dosage: UNK

REACTIONS (2)
  - Drug interaction [Recovered/Resolved]
  - Confusional state [Recovered/Resolved]
